FAERS Safety Report 7701779-3 (Version None)
Quarter: 2011Q3

REPORT INFORMATION
  Report Type: 
  Country: None (occurrence: None)
  Receive Date: 20110822
  Receipt Date: 20110815
  Transmission Date: 20111222
  Serious: Yes (Other)
  Sender: FDA-Public Use
  Company Number: US-BAYER-201041785NA

PATIENT
  Age: 57 Year
  Sex: Female
  Weight: 88 kg

DRUGS (16)
  1. HEPARIN [Concomitant]
     Dosage: UNK, DRIP
     Route: 042
     Dates: start: 20010829
  2. OMNIPAQUE 140 [Concomitant]
     Indication: ARTERIOGRAM CORONARY
     Dosage: 15 ML/SEC FOR 3 SECONDS
     Dates: start: 20010829
  3. TRASYLOL [Suspect]
     Indication: CORONARY ARTERY BYPASS
     Dosage: UNK ML, UNK
     Route: 042
     Dates: start: 20010831, end: 20010831
  4. PROTONIX [Concomitant]
     Dosage: EVERY 12 HOURS
     Route: 042
     Dates: start: 20010831, end: 20010905
  5. MIDAZOLAM HCL [Concomitant]
     Dosage: 20, 25, 25, 5MG
     Route: 042
     Dates: start: 20010831
  6. TRASYLOL [Suspect]
     Dosage: 300 ML, UNK
     Route: 042
     Dates: start: 20010831
  7. ALTACE [Concomitant]
     Dosage: 2.5 MG, QD, LONG TERM
     Route: 048
     Dates: end: 20010917
  8. HEPARIN [Concomitant]
     Dosage: 470 MG, UNK, TOTAL
     Route: 042
     Dates: start: 20010831
  9. RED BLOOD CELLS [Concomitant]
     Dosage: 1 U
     Route: 042
     Dates: start: 20010905
  10. LEVAQUIN [Concomitant]
     Dosage: 500 MG, EVERY 24 HOURS
     Route: 042
     Dates: start: 20010830
  11. ACETYLSALICYLIC ACID SRT [Concomitant]
     Dosage: 325 MG, QD, LONG TERM
     Route: 042
  12. PROTAMINE [Concomitant]
     Dosage: 250 MG, UNK
     Route: 042
     Dates: start: 20010831
  13. OMNIPAQUE 140 [Concomitant]
     Dosage: 4-6 ML IN MULTIPLE PROJECTIONS
     Dates: start: 20010829
  14. ADENOSINE [Concomitant]
     Indication: SUPRAVENTRICULAR TACHYCARDIA
     Dosage: UNK
     Dates: start: 20021124
  15. RED BLOOD CELLS [Concomitant]
     Dosage: 1 U, UNK
     Route: 042
     Dates: start: 20010831
  16. RED BLOOD CELLS [Concomitant]
     Dosage: 1 U
     Route: 042
     Dates: start: 20010903

REACTIONS (10)
  - UNEVALUABLE EVENT [None]
  - PAIN [None]
  - RENAL IMPAIRMENT [None]
  - STRESS [None]
  - INJURY [None]
  - RENAL FAILURE [None]
  - FEAR [None]
  - RENAL INJURY [None]
  - ANXIETY [None]
  - EMOTIONAL DISTRESS [None]
